FAERS Safety Report 20951276 (Version 1)
Quarter: 2022Q2

REPORT INFORMATION
  Report Type: Spontaneous
  Country: JP (occurrence: JP)
  Receive Date: 20220613
  Receipt Date: 20220613
  Transmission Date: 20220721
  Serious: Yes (Other)
  Sender: FDA-Public Use
  Company Number: JP-PFIZER INC-202200810126

PATIENT
  Sex: Female

DRUGS (1)
  1. LYRICA [Suspect]
     Active Substance: PREGABALIN
     Indication: Pain
     Dosage: 150 MG, 2X/DAY
     Route: 048

REACTIONS (2)
  - Hallucination, auditory [Unknown]
  - Breast operation [Unknown]

NARRATIVE: CASE EVENT DATE: 20211201
